FAERS Safety Report 19713197 (Version 1)
Quarter: 2021Q3

REPORT INFORMATION
  Report Type: Spontaneous
  Country: US (occurrence: US)
  Receive Date: 20210818
  Receipt Date: 20210818
  Transmission Date: 20211014
  Serious: Yes (Disabling)
  Sender: FDA-Public Use
  Company Number: None

PATIENT
  Age: 61 Year
  Sex: Female
  Weight: 60.75 kg

DRUGS (2)
  1. CIPROFLOXACIN. [Suspect]
     Active Substance: CIPROFLOXACIN
     Indication: URINARY TRACT INFECTION
     Dosage: ?          QUANTITY:1 TABLET(S);?
     Route: 048
     Dates: start: 20210714, end: 20210716
  2. FLORASTOR PROBIOTIC [Concomitant]

REACTIONS (7)
  - Arthralgia [None]
  - Gait disturbance [None]
  - Myalgia [None]
  - Fatigue [None]
  - Paraesthesia [None]
  - Tachycardia [None]
  - Pain in extremity [None]

NARRATIVE: CASE EVENT DATE: 20210714
